FAERS Safety Report 15487306 (Version 2)
Quarter: 2019Q2

REPORT INFORMATION
  Report Type: Spontaneous
  Country: US (occurrence: US)
  Receive Date: 20181011
  Receipt Date: 20190517
  Transmission Date: 20190711
  Serious: No
  Sender: FDA-Public Use
  Company Number: US-BAYER-2018-189538

PATIENT
  Age: 38 Year
  Sex: Female

DRUGS (2)
  1. BETASERON [Suspect]
     Active Substance: INTERFERON BETA-1B
     Dosage: 0.3 MG, UNK
     Route: 058
     Dates: start: 201708
  2. BETASERON MIXJECT TRANSFER DEVICE VIAL ADAPTER [Suspect]
     Active Substance: INTERFERON BETA-1B

REACTIONS (2)
  - Device leakage [None]
  - Product dose omission [None]

NARRATIVE: CASE EVENT DATE: 20181008
